FAERS Safety Report 8937144 (Version 2)
Quarter: 2013Q2

REPORT INFORMATION
  Report Type: Spontaneous
  Country: IT (occurrence: None)
  Receive Date: 20121123
  Receipt Date: 20130401
  Transmission Date: 20140414
  Serious: Yes (Other)
  Sender: FDA-Public Use
  Company Number: 2012AP003818

PATIENT
  Age: 33 Year
  Sex: Female

DRUGS (2)
  1. LEVETIRACETAM [Suspect]
     Indication: EPILEPSY
     Route: 048
     Dates: start: 20121024, end: 20121027
  2. LEVETIRACETAM [Suspect]
     Indication: HYPOXIA
     Route: 048
     Dates: start: 20121024, end: 20121027

REACTIONS (4)
  - Epilepsy [None]
  - Intentional drug misuse [None]
  - Drug effect decreased [None]
  - Disease recurrence [None]
